FAERS Safety Report 7365788-9 (Version None)
Quarter: 2011Q1

REPORT INFORMATION
  Report Type: 
  Country: None (occurrence: None)
  Receive Date: 20110322
  Receipt Date: 20110316
  Transmission Date: 20110831
  Serious: Yes (Hospitalization)
  Sender: FDA-Public Use
  Company Number: DE-ABBOTT-11P-062-0711389-00

PATIENT
  Sex: Female

DRUGS (1)
  1. HUMIRA [Suspect]
     Indication: PSORIASIS
     Dates: start: 20091112, end: 20101224

REACTIONS (4)
  - ASTHENIA [None]
  - HYPOAESTHESIA [None]
  - VIRAL INFECTION [None]
  - MOBILITY DECREASED [None]
